FAERS Safety Report 7593586-X (Version None)
Quarter: 2011Q3

REPORT INFORMATION
  Report Type: 
  Country: None (occurrence: None)
  Receive Date: 20110706
  Receipt Date: 20110627
  Transmission Date: 20111222
  Serious: Yes (Death, Life-Threatening, Hospitalization)
  Sender: FDA-Public Use
  Company Number: GB-ELI_LILLY_AND_COMPANY-GB201106008041

PATIENT
  Age: 64 Year
  Sex: Male

DRUGS (9)
  1. OTHER PHARMA COMPANY INV DRUG [Suspect]
     Indication: MANTLE CELL LYMPHOMA
     Dosage: 1.5 MG, EVERY THREE WEEKS
     Route: 042
     Dates: start: 20100805, end: 20100805
  2. MORPHINE SULFATE [Concomitant]
     Indication: PAIN
     Dosage: UNK
     Dates: start: 20100803
  3. GEMCITABINE HYDROCHLORIDE [Suspect]
     Indication: MANTLE CELL LYMPHOMA
     Dosage: 931 MG, SINGLE
     Route: 042
     Dates: start: 20100805, end: 20100805
  4. DEXAMETHASONE [Suspect]
     Indication: MANTLE CELL LYMPHOMA
     Dosage: 40 MG, SINGLE DAYS 1-4
     Route: 048
     Dates: start: 20100805
  5. ONDANSETRON [Concomitant]
     Indication: VOMITING
     Dosage: UNK
     Dates: start: 20100804
  6. CISPLATIN [Suspect]
     Indication: MANTLE CELL LYMPHOMA
     Dosage: 94 MG, SINGLE
     Route: 042
     Dates: start: 20100805, end: 20100805
  7. RITUXIMAB [Suspect]
     Indication: MANTLE CELL LYMPHOMA
     Dosage: 700 MG, SINGLE
     Route: 042
     Dates: start: 20100805, end: 20100805
  8. LANSOPRAZOLE [Concomitant]
     Dosage: UNK
     Dates: start: 20100804
  9. DOMPERIDONE [Concomitant]
     Indication: VOMITING
     Dosage: UNK
     Dates: start: 20100804

REACTIONS (7)
  - MANTLE CELL LYMPHOMA [None]
  - NEOPLASM PROGRESSION [None]
  - BLOOD PHOSPHORUS INCREASED [None]
  - BLOOD CREATININE INCREASED [None]
  - TUMOUR LYSIS SYNDROME [None]
  - GENERAL PHYSICAL HEALTH DETERIORATION [None]
  - PAIN [None]
